FAERS Safety Report 17022803 (Version 3)
Quarter: 2019Q4

REPORT INFORMATION
  Report Type: Spontaneous
  Country: US (occurrence: US)
  Receive Date: 20191112
  Receipt Date: 20191213
  Transmission Date: 20200122
  Serious: Yes (Other)
  Sender: FDA-Public Use
  Company Number: US-PFIZER INC-2019485324

PATIENT
  Age: 78 Year
  Sex: Female
  Weight: 72.57 kg

DRUGS (4)
  1. MONTELUKAST [Concomitant]
     Active Substance: MONTELUKAST SODIUM
     Indication: HYPERSENSITIVITY
     Dosage: UNK
  2. PRISTIQ EXTENDED-RELEASE [Suspect]
     Active Substance: DESVENLAFAXINE SUCCINATE
     Indication: DEPRESSION
     Dosage: 50 MG, ONCE A DAY
     Dates: start: 2017
  3. PRISTIQ EXTENDED-RELEASE [Suspect]
     Active Substance: DESVENLAFAXINE SUCCINATE
     Indication: ANXIETY
  4. MONTELUKAST [Concomitant]
     Active Substance: MONTELUKAST SODIUM
     Indication: SINUS DISORDER

REACTIONS (1)
  - Neoplasm malignant [Unknown]
